FAERS Safety Report 8149146 (Version 3)
Quarter: 2013Q1

REPORT INFORMATION
  Report Type: Spontaneous
  Country: US (occurrence: US)
  Receive Date: 20110922
  Receipt Date: 20130215
  Transmission Date: 20140127
  Serious: Yes (Other)
  Sender: FDA-Public Use
  Company Number: US-ASTRAZENECA-2011SE12652

PATIENT
  Age: 620 Month
  Sex: 0
  Weight: 88.5 kg

DRUGS (14)
  1. SEROQUEL [Suspect]
     Dosage: 1 TO 2 TABLETS BY MOUTH TWICE A DAY
     Route: 048
     Dates: start: 20050805
  2. SEROQUEL [Suspect]
     Dosage: 2 TABLETS BY MOUTH THREE TIMES A DAY
     Route: 048
     Dates: start: 20051129
  3. SEROQUEL [Suspect]
     Dosage: TAKE 1 TABLET BY MOUTH ONCE DAILY
     Route: 048
     Dates: start: 20070530
  4. SEROQUEL [Suspect]
     Dosage: TAKE 1 TABLET BY MOUTH ONCE DAILY
     Route: 048
     Dates: start: 20070624
  5. SEROQUEL [Suspect]
     Dosage: TAKE 2 TABLETS ORALLY (400 MG) AT BEDTIME
     Route: 048
     Dates: start: 20071016
  6. ASPIRIN [Concomitant]
     Dates: start: 20091001, end: 20110831
  7. LISINOPRIL [Concomitant]
     Dates: start: 20091209
  8. LITHIUM CARBONATE [Concomitant]
     Dates: start: 20100228
  9. TRAZODONE HCL [Concomitant]
     Dates: start: 20100423
  10. GEODON [Concomitant]
     Dates: start: 20100423
  11. CELEXA [Concomitant]
     Dates: start: 20101015
  12. VITAMIN D [Concomitant]
     Dosage: 2000UNIT CAPSULE 4000 UNITS PO DAILY X 3 MONTHS
     Dates: start: 20101117
  13. SIMVASTATIN [Concomitant]
     Route: 048
     Dates: start: 20101125
  14. LEVOTHYROXINE SODIUM [Concomitant]
     Dosage: 75MCG TABLET 1 PO Q DAY
     Route: 048
     Dates: start: 20110110

REACTIONS (3)
  - Pancreatitis [Unknown]
  - Diabetic coma [Unknown]
  - Type 2 diabetes mellitus [Unknown]
